FAERS Safety Report 10106515 (Version 2)
Quarter: 2014Q3

REPORT INFORMATION
  Report Type: Other
  Country: US (occurrence: US)
  Receive Date: 20140424
  Receipt Date: 20140722
  Transmission Date: 20150326
  Serious: Yes (Death, Other)
  Sender: FDA-Public Use
  Company Number: US-GSKPPD-2014GSK002074

PATIENT
  Age: 73 Year
  Sex: Female

DRUGS (13)
  1. AVANDIA [Suspect]
     Active Substance: ROSIGLITAZONE MALEATE
     Indication: DIABETES MELLITUS
     Route: 048
     Dates: start: 20050822, end: 20070531
  2. REQUIP [Concomitant]
     Active Substance: ROPINIROLE HYDROCHLORIDE
     Route: 048
  3. PRAVACHOL [Concomitant]
     Active Substance: PRAVASTATIN SODIUM
     Route: 048
  4. ZYLOPRIM [Concomitant]
     Active Substance: ALLOPURINOL
     Route: 048
  5. LANOXIN [Concomitant]
     Active Substance: DIGOXIN
     Route: 048
  6. RESTORIL [Concomitant]
     Active Substance: TEMAZEPAM
     Route: 048
  7. COUMADIN [Concomitant]
     Active Substance: WARFARIN SODIUM
     Route: 048
  8. ZETIA [Concomitant]
     Active Substance: EZETIMIBE
     Route: 048
  9. LASIX [Concomitant]
     Active Substance: FUROSEMIDE
     Route: 048
  10. XOPENEX [Concomitant]
     Active Substance: LEVALBUTEROL HYDROCHLORIDE
     Dosage: 1.25MG/3ML
  11. TUSSIONEX PENNIKINETIC ER [Concomitant]
     Dosage: 8-10 MG/5 ML
     Route: 048
  12. COREG [Concomitant]
     Active Substance: CARVEDILOL
  13. INDOMETHACIN. [Concomitant]
     Active Substance: INDOMETHACIN
     Route: 048

REACTIONS (2)
  - Cerebrovascular accident [None]
  - Chronic obstructive pulmonary disease [Fatal]

NARRATIVE: CASE EVENT DATE: 20120325
